FAERS Safety Report 24703405 (Version 2)
Quarter: 2024Q4

REPORT INFORMATION
  Report Type: Report from Study
  Country: PT (occurrence: PT)
  Receive Date: 20241205
  Receipt Date: 20241219
  Transmission Date: 20250115
  Serious: Yes (Hospitalization)
  Sender: ABBVIE
  Company Number: PT-ABBVIE-6003016

PATIENT
  Age: 71 Year
  Sex: Male

DRUGS (11)
  1. CARBIDOPA\LEVODOPA [Suspect]
     Active Substance: CARBIDOPA\LEVODOPA
     Indication: Parkinson^s disease
     Dosage: 20 MG + 5 MG  MORN:14CC;MAIN:3.8CC/H;EXTRA:1.8CC
     Route: 050
     Dates: start: 2024, end: 20241007
  2. CARBIDOPA\LEVODOPA [Suspect]
     Active Substance: CARBIDOPA\LEVODOPA
     Dosage: 20 MG + 5 MG, ?LAST ADMIN DATE 2024, ?MORN:7CC;MAIN:2.5CC/H;EXTRA:1CC
     Route: 050
     Dates: start: 20240116
  3. CARBIDOPA\LEVODOPA [Suspect]
     Active Substance: CARBIDOPA\LEVODOPA
     Dosage: 20 MG + 5 MG (PEG), ?MORN:14CC;MAIN:5.8CC/H;EXTRA:1.8CC
     Route: 050
     Dates: start: 20241110, end: 202412
  4. CARBIDOPA\LEVODOPA [Suspect]
     Active Substance: CARBIDOPA\LEVODOPA
     Dosage: 20 MG + 5 MG (PEG), ?LAST ADMIN DATE IN 2024, ?MORN:14CC;MAIN:3.8CC/H;EXTRA:1.8CC
     Route: 050
     Dates: start: 20241007
  5. CARBIDOPA\LEVODOPA [Suspect]
     Active Substance: CARBIDOPA\LEVODOPA
     Dosage: 20 MG + 5 MG (PEG), ?FIRST ADMIN DATE 2024, ?MORN:14CC;MAIN:3.5CC/H;EXTRA:1.8CC
     Route: 050
     Dates: end: 20241110
  6. PANTOPRAZOLE [Concomitant]
     Active Substance: PANTOPRAZOLE
     Indication: Product used for unknown indication
     Dosage: 1 TABLET,?FORM STRENGTH: 40 MG, ?START DATE TEXT: BEFORE DUODOPA
  7. METHIMAZOLE [Concomitant]
     Active Substance: METHIMAZOLE
     Indication: Product used for unknown indication
     Dosage: 1 TABLET,  ?FORM STRENGTH: 7.5 MG, ?FREQUENCY TEXT: AT LUNCH,?START DATE TEXT: BEFORE DUODOPA
  8. CLONAZEPAM [Concomitant]
     Active Substance: CLONAZEPAM
     Indication: Product used for unknown indication
     Dosage: 1 TABLET, ?FORM STRENGTH: 2 MILLIGRAM ,?FREQUENCY TEXT: AT BEDTIME,?START DATE TEXT: BEFORE DUODOPA
  9. LACTULOSE [Concomitant]
     Active Substance: LACTULOSE
     Indication: Product used for unknown indication
     Dosage: TIME INTERVAL: 0.33333333 DAYS: 1 SACHET, ?START DATE TEXT: BEFORE DUODOPA
  10. SERTRALINE [Concomitant]
     Active Substance: SERTRALINE HYDROCHLORIDE
     Indication: Product used for unknown indication
     Dosage: 1 TABLET?FORM STRENGTH: 100 MG, ?START DATE TEXT: BEFORE DUODOPA
  11. MIRTAZAPINE [Concomitant]
     Active Substance: MIRTAZAPINE
     Indication: Product used for unknown indication
     Dosage: 1 TABLET, FORM STRENGTH: 45 MG, ?FREQUENCY TEXT: AFTER DINNER,?START DATE TEXT: BEFORE DUODOPA

REACTIONS (3)
  - Contusion [Recovering/Resolving]
  - Psychotic disorder [Recovered/Resolved]
  - Agitation [Recovered/Resolved]

NARRATIVE: CASE EVENT DATE: 20241101
